FAERS Safety Report 13113152 (Version 1)
Quarter: 2017Q1

REPORT INFORMATION
  Report Type: Spontaneous
  Country: US (occurrence: US)
  Receive Date: 20170112
  Receipt Date: 20170112
  Transmission Date: 20170428
  Serious: No
  Sender: FDA-Public Use
  Company Number: None

PATIENT
  Sex: Female

DRUGS (1)
  1. IBRANCE [Suspect]
     Active Substance: PALBOCICLIB
     Indication: BREAST CANCER
     Dosage: DAILY X 21 DAYS/7 OFF
     Route: 048
     Dates: start: 20141214

REACTIONS (3)
  - Skin fissures [None]
  - Dry skin [None]
  - Paraesthesia [None]
